FAERS Safety Report 23211251 (Version 10)
Quarter: 2024Q3

REPORT INFORMATION
  Report Type: Spontaneous
  Country: US (occurrence: US)
  Receive Date: 20231121
  Receipt Date: 20240801
  Transmission Date: 20241017
  Serious: Yes (Other)
  Sender: SANOFI AVENTIS
  Company Number: US-SA-SAC20231116000977

PATIENT
  Age: 47 Year
  Sex: Female
  Weight: 58.9 kg

DRUGS (4)
  1. DUPIXENT [Suspect]
     Active Substance: DUPILUMAB
     Indication: Dermatitis atopic
     Dosage: 600 MG, 1X
     Route: 058
     Dates: start: 202206, end: 202206
  2. DUPIXENT [Suspect]
     Active Substance: DUPILUMAB
     Indication: Eczema
     Dosage: 300 MG, QOW
     Route: 058
     Dates: start: 2022
  3. DUPIXENT [Suspect]
     Active Substance: DUPILUMAB
     Dosage: 300 MG, QOW
     Route: 058
     Dates: start: 202310
  4. LAMOTRIGINE [Suspect]
     Active Substance: LAMOTRIGINE
     Dosage: UNK
     Route: 065

REACTIONS (27)
  - Loss of consciousness [Unknown]
  - Myocardial infarction [Unknown]
  - Dry skin [Unknown]
  - Blood pressure increased [Unknown]
  - Head discomfort [Unknown]
  - Nasal congestion [Unknown]
  - Heart rate increased [Unknown]
  - Blood pressure abnormal [Unknown]
  - Weight decreased [Recovering/Resolving]
  - Sinonasal obstruction [Unknown]
  - Lacrimation increased [Unknown]
  - Chills [Unknown]
  - Anxiety [Unknown]
  - Venous thrombosis [Unknown]
  - Staphylococcal infection [Unknown]
  - Eye discharge [Unknown]
  - Pruritus [Unknown]
  - Dizziness postural [Unknown]
  - Urticaria [Unknown]
  - Sinusitis [Unknown]
  - Condition aggravated [Unknown]
  - Rhinorrhoea [Unknown]
  - Injection site pain [Unknown]
  - Accidental exposure to product [Unknown]
  - Exposure via skin contact [Unknown]
  - Therapeutic response unexpected [Unknown]
  - Therapeutic response shortened [Unknown]

NARRATIVE: CASE EVENT DATE: 20220101
